FAERS Safety Report 17174506 (Version 3)
Quarter: 2022Q2

REPORT INFORMATION
  Report Type: Spontaneous
  Country: ES (occurrence: ES)
  Receive Date: 20191219
  Receipt Date: 20220512
  Transmission Date: 20220721
  Serious: Yes (Disabling, Other)
  Sender: FDA-Public Use
  Company Number: ES-TEVA-2019-ES-1091240

PATIENT
  Age: 71 Year
  Sex: Female

DRUGS (12)
  1. OXCARBAZEPINE [Interacting]
     Active Substance: OXCARBAZEPINE
     Indication: Product used for unknown indication
     Dosage: UNK
     Route: 065
  2. OXCARBAZEPINE [Interacting]
     Active Substance: OXCARBAZEPINE
     Dosage: 300 MILLIGRAM, BID (600 MILLIGRAM DAILY)
     Route: 065
  3. QUETIAPINE [Interacting]
     Active Substance: QUETIAPINE
     Indication: Product used for unknown indication
     Dosage: 200 MILLIGRAM, BID (AT BREAKFAST AND DINNER)
     Route: 065
  4. ASPIRIN [Suspect]
     Active Substance: ASPIRIN
     Indication: Product used for unknown indication
     Dosage: 100 MILLIGRAM DAILY;
     Route: 065
  5. OMEPRAZOLE [Suspect]
     Active Substance: OMEPRAZOLE
     Indication: Product used for unknown indication
     Dosage: 20 MILLIGRAM DAILY;
     Route: 065
  6. AMLODIPINE [Suspect]
     Active Substance: AMLODIPINE BESYLATE
     Indication: Product used for unknown indication
     Dosage: 5 MILLIGRAM DAILY; AT BREAKFAST
  7. LOSARTAN [Suspect]
     Active Substance: LOSARTAN
     Indication: Product used for unknown indication
     Dosage: 100 MILLIGRAM, AM (100 MILLIGRAM DAILY; AT BREAKFAST )
     Route: 065
  8. PREGABALIN [Suspect]
     Active Substance: PREGABALIN
     Indication: Product used for unknown indication
     Dosage: 75 MILLIGRAM, Q8H (225 MILLIGRAM DAILY)
     Route: 065
  9. SIMVASTATIN [Suspect]
     Active Substance: SIMVASTATIN
     Indication: Product used for unknown indication
     Dosage: 10 MILLIGRAM, PM (10 MILLIGRAM DAILY; AT DINNER)
     Route: 065
  10. BROMAZEPAM [Suspect]
     Active Substance: BROMAZEPAM
     Indication: Product used for unknown indication
     Dosage: 3 MILLIGRAM, Q8H (9 MILLIGRAM DAILY)
     Route: 065
  11. BROMAZEPAM [Concomitant]
     Active Substance: BROMAZEPAM
     Dosage: UNK
  12. QUETIAPINE [Concomitant]
     Active Substance: QUETIAPINE
     Dosage: 200 MG AT BREAKFAST AND DINNER

REACTIONS (11)
  - Insomnia [Recovered/Resolved]
  - Physical disability [Recovered/Resolved]
  - Anal incontinence [Recovered/Resolved]
  - Bradykinesia [Recovered/Resolved]
  - Memory impairment [Recovered/Resolved]
  - Speech disorder [Recovered/Resolved]
  - Parkinsonism [Recovered/Resolved]
  - Dependence [Recovered/Resolved]
  - Muscle rigidity [Recovered/Resolved]
  - Drug interaction [Recovered/Resolved]
  - Impaired quality of life [Recovered/Resolved]
